FAERS Safety Report 9261867 (Version 1)
Quarter: 2013Q2

REPORT INFORMATION
  Report Type: Spontaneous
  Country: US (occurrence: US)
  Receive Date: 20130429
  Receipt Date: 20130429
  Transmission Date: 20140414
  Serious: Yes (Other)
  Sender: FDA-Public Use
  Company Number: US-PFIZER INC-2013133412

PATIENT
  Age: 58 Year
  Sex: Male
  Weight: 140.59 kg

DRUGS (6)
  1. LYRICA [Suspect]
     Indication: NEUROPATHY PERIPHERAL
     Dosage: 50 MG, 2X/DAY
     Route: 048
     Dates: start: 1998
  2. LYRICA [Suspect]
     Dosage: 150 MG, 2X/DAY
     Route: 048
     Dates: end: 201301
  3. ACTOS [Concomitant]
     Indication: DIABETES MELLITUS
     Dosage: UNK
  4. DIOVAN [Concomitant]
     Indication: HYPERTENSION
     Dosage: UNK
  5. CYMBALTA [Concomitant]
     Indication: PAIN
     Dosage: UNK
  6. BUTRANS [Concomitant]
     Indication: PAIN
     Dosage: UNK
     Route: 062

REACTIONS (2)
  - Renal failure chronic [Unknown]
  - Vision blurred [Recovered/Resolved]
